FAERS Safety Report 7723537-6 (Version None)
Quarter: 2011Q3

REPORT INFORMATION
  Report Type: 
  Country: None (occurrence: None)
  Receive Date: 20110901
  Receipt Date: 20110825
  Transmission Date: 20111222
  Serious: Yes (Life-Threatening)
  Sender: FDA-Public Use
  Company Number: PHHY2011AR76389

PATIENT
  Sex: Male

DRUGS (1)
  1. RASILEZ [Suspect]
     Indication: ISCHAEMIC CARDIOMYOPATHY

REACTIONS (1)
  - MYELODYSPLASTIC SYNDROME [None]
